FAERS Safety Report 17053769 (Version 1)
Quarter: 2019Q4

REPORT INFORMATION
  Report Type: Spontaneous
  Country: AL (occurrence: AL)
  Receive Date: 20191120
  Receipt Date: 20191120
  Transmission Date: 20200122
  Serious: Yes (Hospitalization, Other)
  Sender: FDA-Public Use
  Company Number: AL-SA-2019SA319264

PATIENT
  Age: 53 Year
  Sex: Male

DRUGS (2)
  1. INSUMAN RAPID [Concomitant]
     Active Substance: INSULIN HUMAN
     Indication: TYPE 2 DIABETES MELLITUS
     Dosage: UNK
     Route: 065
     Dates: start: 2015
  2. LANTUS [Suspect]
     Active Substance: INSULIN GLARGINE
     Indication: TYPE 2 DIABETES MELLITUS
     Dosage: UNK UNK, UNK
     Route: 065
     Dates: start: 2015, end: 2019

REACTIONS (5)
  - Diabetes mellitus inadequate control [Recovered/Resolved]
  - Night sweats [Recovered/Resolved]
  - Blood glucose fluctuation [Recovered/Resolved]
  - Hypoglycaemia [Recovered/Resolved]
  - Gangrene [Recovered/Resolved]
